FAERS Safety Report 10350450 (Version 1)
Quarter: 2014Q3

REPORT INFORMATION
  Report Type: Spontaneous
  Country: US (occurrence: None)
  Receive Date: 20140728
  Receipt Date: 20140728
  Transmission Date: 20150326
  Serious: Yes (Hospitalization)
  Sender: FDA-Public Use
  Company Number: None

PATIENT
  Age: 44 Year
  Sex: Female
  Weight: 87.09 kg

DRUGS (1)
  1. PARAGARD T380A [Suspect]
     Active Substance: COPPER

REACTIONS (7)
  - Medical device complication [None]
  - Uterine leiomyoma [None]
  - Infection [None]
  - Device dislocation [None]
  - Haemorrhage [None]
  - Muscle spasms [None]
  - Pain [None]

NARRATIVE: CASE EVENT DATE: 20140724
